FAERS Safety Report 25746737 (Version 2)
Quarter: 2025Q3

REPORT INFORMATION
  Report Type: Spontaneous
  Country: EU (occurrence: EU)
  Receive Date: 20250901
  Receipt Date: 20250918
  Transmission Date: 20251021
  Serious: Yes (Hospitalization)
  Sender: MERCK SHARP & DOHME LLC
  Company Number: None

PATIENT
  Age: 51 Year
  Sex: Female

DRUGS (8)
  1. PEMBROLIZUMAB [Suspect]
     Active Substance: PEMBROLIZUMAB
     Indication: Breast cancer
     Dosage: 200MG EVERY 21 DAYS; 25 MG/ML
     Route: 042
     Dates: start: 20250624, end: 20250805
  2. LORAZEPAM [Concomitant]
     Active Substance: LORAZEPAM
  3. CYAMEMAZINE [Concomitant]
     Active Substance: CYAMEMAZINE
  4. BISOPROLOL [Concomitant]
     Active Substance: BISOPROLOL
  5. QUETIAPINE [Concomitant]
     Active Substance: QUETIAPINE
  6. OXAZEPAM [Concomitant]
     Active Substance: OXAZEPAM
     Route: 048
  7. FLURAZEPAM [Concomitant]
     Active Substance: FLURAZEPAM HYDROCHLORIDE
  8. VENLAFAXINE HYDROCHLORIDE [Concomitant]
     Active Substance: VENLAFAXINE HYDROCHLORIDE

REACTIONS (1)
  - Cerebral haemorrhage [Recovering/Resolving]

NARRATIVE: CASE EVENT DATE: 20250807
